FAERS Safety Report 23557129 (Version 2)
Quarter: 2024Q1

REPORT INFORMATION
  Report Type: Report from Study
  Country: US (occurrence: US)
  Receive Date: 20240223
  Receipt Date: 20240307
  Transmission Date: 20240410
  Serious: Yes (Other)
  Sender: FDA-Public Use
  Company Number: US-TAKEDA-2016BLT002357

PATIENT
  Sex: Female
  Weight: 63 kg

DRUGS (24)
  1. HUMAN IMMUNOGLOBULIN G [Suspect]
     Active Substance: HUMAN IMMUNOGLOBULIN G
     Indication: Lyme disease
     Dosage: UNK
     Route: 058
     Dates: start: 2012
  2. HUMAN IMMUNOGLOBULIN G [Suspect]
     Active Substance: HUMAN IMMUNOGLOBULIN G
     Indication: Primary immunodeficiency syndrome
     Dosage: 20 GRAM, MONTHLY
     Route: 058
  3. CUVITRU [Suspect]
     Active Substance: HUMAN IMMUNOGLOBULIN G
     Indication: Product used for unknown indication
     Dosage: UNK
     Route: 065
  4. HIZENTRA [Suspect]
     Active Substance: HUMAN IMMUNOGLOBULIN G
     Indication: Product used for unknown indication
     Dosage: UNK
     Route: 065
  5. DIPHENHYDRAMINE [Concomitant]
     Active Substance: DIPHENHYDRAMINE
     Indication: Loss of consciousness
     Dosage: 12.5 MILLIGRAM, QD
     Route: 065
  6. CROMOLYN SODIUM [Concomitant]
     Active Substance: CROMOLYN SODIUM
     Indication: Food allergy
     Dosage: 4 DOSAGE FORM, QID
     Route: 048
  7. METHYLCOBALAMIN [Concomitant]
     Active Substance: METHYLCOBALAMIN
     Indication: Vitamin B12 deficiency
     Dosage: 1 MILLIGRAM, 1/WEEK
     Route: 065
  8. METHYLCOBALAMIN [Concomitant]
     Active Substance: METHYLCOBALAMIN
     Indication: Malabsorption
  9. PEPCID AC [Concomitant]
     Active Substance: FAMOTIDINE
     Dosage: 20 MILLIGRAM, BID
     Route: 065
  10. ALBUTEROL [Concomitant]
     Active Substance: ALBUTEROL
     Indication: Wheezing
     Dosage: UNK
  11. BROMFENAC [Concomitant]
     Active Substance: BROMFENAC SODIUM
     Indication: Blindness
     Dosage: UNK
     Route: 065
  12. FLOVENT [Concomitant]
     Active Substance: FLUTICASONE PROPIONATE
     Indication: Wheezing
     Dosage: 2 DOSAGE FORM, BID
     Route: 065
  13. AMBIEN [Concomitant]
     Active Substance: ZOLPIDEM TARTRATE
     Indication: Insomnia
     Dosage: 12.5 MILLIGRAM, QD
     Route: 065
  14. AUVI-Q [Concomitant]
     Active Substance: EPINEPHRINE
     Dosage: UNK
  15. DICLOFENAC [Concomitant]
     Active Substance: DICLOFENAC
     Indication: Tendonitis
     Dosage: UNK
     Route: 065
  16. BONE UP [Concomitant]
     Indication: Osteoporosis
     Dosage: UNK
     Route: 065
  17. UBIQUINOL [Concomitant]
     Active Substance: UBIQUINOL
     Indication: Migraine
     Dosage: 200 MILLIGRAM, BID
     Route: 065
  18. VITAMIN K [Concomitant]
     Active Substance: PHYTONADIONE
     Dosage: 1 DOSAGE FORM, BID
     Route: 065
  19. D3 +K2 [Concomitant]
     Indication: Vitamin D deficiency
     Dosage: UNK
     Route: 065
  20. LEVOTHYROXINE [Concomitant]
     Active Substance: LEVOTHYROXINE\LEVOTHYROXINE SODIUM
     Indication: Hypothyroidism
     Dosage: 60 MILLIGRAM
     Route: 065
  21. SPIRONOLACTONE [Concomitant]
     Active Substance: SPIRONOLACTONE
     Indication: Alopecia
     Dosage: 25 MILLIGRAM
     Route: 065
  22. ALPHA LIPOIC ACID [Concomitant]
     Active Substance: .ALPHA.-LIPOIC ACID
     Indication: Blood glucose
     Dosage: 100 MILLIGRAM
     Route: 065
  23. IRON [Concomitant]
     Active Substance: IRON
     Indication: Anaemia
     Dosage: 25 MILLIGRAM
     Route: 065
  24. MINOXIDIL [Concomitant]
     Active Substance: MINOXIDIL
     Dosage: 0.25 MILLIGRAM
     Route: 065

REACTIONS (10)
  - Carditis [Not Recovered/Not Resolved]
  - Immunodeficiency [Unknown]
  - Restrictive cardiomyopathy [Recovered/Resolved]
  - Pericardial effusion [Recovered/Resolved]
  - Diabetes mellitus [Unknown]
  - Tooth discolouration [Unknown]
  - Illness [Unknown]
  - COVID-19 [Unknown]
  - Product use in unapproved indication [Unknown]
  - Product use issue [Unknown]

NARRATIVE: CASE EVENT DATE: 20120101
